FAERS Safety Report 16552751 (Version 2)
Quarter: 2019Q3

REPORT INFORMATION
  Report Type: Report from Study
  Country: MX (occurrence: MX)
  Receive Date: 20190710
  Receipt Date: 20190722
  Transmission Date: 20191004
  Serious: Yes (Other)
  Sender: FDA-Public Use
  Company Number: PHHY2019MX145624

PATIENT
  Age: 79 Year
  Sex: Female
  Weight: 75 kg

DRUGS (5)
  1. EXFORGE [Interacting]
     Active Substance: AMLODIPINE BESYLATE\VALSARTAN
     Indication: HYPERTENSION
     Dosage: (AMLODIPINE 5 MG, VALSARTAN 160 MG)
     Route: 048
     Dates: end: 201812
  2. VALVULAN [Concomitant]
     Indication: THROMBOSIS
     Dosage: 1 DF, QD
     Route: 048
     Dates: start: 201812
  3. ELIQUIS [Concomitant]
     Active Substance: APIXABAN
     Indication: THROMBOSIS
     Dosage: 0.5 DF, BID (MORNING AND NIGHT)
     Route: 048
     Dates: start: 201812
  4. ACLASTA [Suspect]
     Active Substance: ZOLEDRONIC ACID
     Indication: PRODUCT USED FOR UNKNOWN INDICATION
     Dosage: 1 DF, Q12MO (EIGHT YEARS AGO)
     Route: 042
  5. EXFORGE [Interacting]
     Active Substance: AMLODIPINE BESYLATE\VALSARTAN
     Dosage: 1 DF (AMLODIPINE 5 MG, VALSARTAN 160 MG), QD
     Route: 048
     Dates: start: 201907

REACTIONS (5)
  - Hypokinesia [Unknown]
  - Heart rate abnormal [Unknown]
  - Arrhythmia [Unknown]
  - Hypoaesthesia [Recovered/Resolved]
  - Feeling abnormal [Unknown]

NARRATIVE: CASE EVENT DATE: 20181223
